FAERS Safety Report 26195046 (Version 1)
Quarter: 2025Q4

REPORT INFORMATION
  Report Type: Spontaneous
  Country: CH (occurrence: CH)
  Receive Date: 20251224
  Receipt Date: 20251224
  Transmission Date: 20260117
  Serious: Yes (Other)
  Sender: ASTELLAS
  Company Number: None

PATIENT
  Age: 38 Year
  Sex: Female
  Weight: 46 kg

DRUGS (6)
  1. PROGRAF [Suspect]
     Active Substance: TACROLIMUS
     Indication: Product used for unknown indication
     Dosage: 1.5MG-0-1.5MG
     Route: 048
     Dates: start: 20250929, end: 20251029
  2. PROGRAF [Suspect]
     Active Substance: TACROLIMUS
     Dosage: 1.5 MG-0 MG-1 MG
     Route: 048
     Dates: start: 20251030, end: 20251110
  3. PROGRAF [Suspect]
     Active Substance: TACROLIMUS
     Dosage: 1-0-1
     Route: 048
     Dates: start: 20251111, end: 20251201
  4. PROGRAF [Suspect]
     Active Substance: TACROLIMUS
     Dosage: 1.5-0-1.5
     Route: 048
     Dates: start: 20251202
  5. PREDNISONE [Suspect]
     Active Substance: PREDNISONE
     Indication: Product used for unknown indication
     Route: 048
     Dates: start: 20251024, end: 20251104
  6. PREDNISONE [Suspect]
     Active Substance: PREDNISONE
     Dosage: TAPERING SINCE 05.11.2025 IN NON-ACTIVE CUTANEOUS GVHD, STOP ON 03.12.2025
     Route: 048
     Dates: start: 20251105, end: 20251203

REACTIONS (2)
  - Hypertriglyceridaemia [Not Recovered/Not Resolved]
  - Hyperchylomicronaemia [Not Recovered/Not Resolved]

NARRATIVE: CASE EVENT DATE: 20251104
